FAERS Safety Report 13574459 (Version 1)
Quarter: 2017Q2

REPORT INFORMATION
  Report Type: Spontaneous
  Country: US (occurrence: US)
  Receive Date: 20170523
  Receipt Date: 20170523
  Transmission Date: 20170830
  Serious: No
  Sender: FDA-Public Use
  Company Number: US-BAYER-2017-097025

PATIENT

DRUGS (2)
  1. ADEMPAS [Suspect]
     Active Substance: RIOCIGUAT
     Dosage: UNK
  2. RITONAVIR. [Interacting]
     Active Substance: RITONAVIR
     Dosage: UNK

REACTIONS (2)
  - Hypotension [None]
  - Drug interaction [None]
